FAERS Safety Report 5345852-6 (Version None)
Quarter: 2007Q2

REPORT INFORMATION
  Report Type: 
  Country: None (occurrence: None)
  Receive Date: 20070426
  Receipt Date: 20060808
  Transmission Date: 20071010
  Serious: Yes (Other)
  Sender: FDA-Public Use
  Company Number: US-JNJFOC-20060704424

PATIENT
  Age: 78 Year
  Sex: Female

DRUGS (4)
  1. ULTRAM [Suspect]
     Indication: PAIN
     Dosage: 100 MG, 1 IN 6 HOUR, ORAL
     Route: 048
     Dates: start: 20060601, end: 20060715
  2. ACETAMINOPHEN [Suspect]
     Indication: ARTHRALGIA
     Dosage: 1300 MG, 1 IN 8 HOUR, ORAL
     Route: 048
     Dates: start: 20060401, end: 20060715
  3. LEVOTHYROXINE SODIUM [Concomitant]
  4. CALCIUM SUPPLEMENT (CALCIUM) [Concomitant]

REACTIONS (11)
  - ASTHENIA [None]
  - BREATH ODOUR [None]
  - DECREASED APPETITE [None]
  - DIARRHOEA [None]
  - DIZZINESS [None]
  - HALLUCINATION [None]
  - HYPERHIDROSIS [None]
  - NAUSEA [None]
  - NIGHTMARE [None]
  - VERTIGO [None]
  - WEIGHT DECREASED [None]
